FAERS Safety Report 25440191 (Version 1)
Quarter: 2025Q2

REPORT INFORMATION
  Report Type: Spontaneous
  Country: JP (occurrence: JP)
  Receive Date: 20250616
  Receipt Date: 20250616
  Transmission Date: 20250717
  Serious: Yes (Other)
  Sender: NOVARTIS
  Company Number: JP-002147023-NVSJ2025JP006295

PATIENT
  Age: 3 Year
  Sex: Female

DRUGS (1)
  1. CYCLOSPORINE [Suspect]
     Active Substance: CYCLOSPORINE
     Indication: Nephrotic syndrome
     Route: 048

REACTIONS (3)
  - Pseudomonas infection [Recovering/Resolving]
  - Bacteraemia [Recovering/Resolving]
  - Pyrexia [Recovering/Resolving]
